FAERS Safety Report 5443606-3 (Version None)
Quarter: 2007Q3

REPORT INFORMATION
  Report Type: 
  Country: None (occurrence: None)
  Receive Date: 20070730
  Receipt Date: 20070314
  Transmission Date: 20080115
  Serious: Yes (Life-Threatening, Disabling)
  Sender: FDA-Public Use
  Company Number: 236180

PATIENT
  Age: 70 Year
  Sex: Male

DRUGS (1)
  1. RITUXAN [Suspect]
     Indication: CHRONIC LYMPHOCYTIC LEUKAEMIA
     Dosage: 675 MG, INTRAVENOUS
     Route: 042
     Dates: start: 20051017

REACTIONS (3)
  - HEART RATE INCREASED [None]
  - HYPOTENSION [None]
  - SKIN INDURATION [None]
